APPROVED DRUG PRODUCT: ADAPALENE
Active Ingredient: ADAPALENE
Strength: 0.1%
Dosage Form/Route: GEL;TOPICAL
Application: A091314 | Product #001
Applicant: GLENMARK PHARMACEUTICALS INC USA
Approved: Jul 1, 2010 | RLD: No | RS: No | Type: OTC